FAERS Safety Report 6969147-X (Version None)
Quarter: 2010Q3

REPORT INFORMATION
  Report Type: 
  Country: None (occurrence: None)
  Receive Date: 20100907
  Receipt Date: 20100830
  Transmission Date: 20110219
  Serious: Yes (Hospitalization)
  Sender: FDA-Public Use
  Company Number: IT-NOVOPROD-314035

PATIENT
  Sex: Female

DRUGS (6)
  1. NOVORAPID FLEXPEN [Suspect]
     Indication: TYPE 2 DIABETES MELLITUS
     Dosage: 23 U/ML, QD
     Route: 058
     Dates: start: 20100316
  2. LANTUS [Suspect]
     Indication: TYPE 2 DIABETES MELLITUS
     Dosage: 22 U/ML, QD
     Route: 058
     Dates: start: 20100316
  3. FOSICOMBI [Concomitant]
     Indication: HYPERTENSION
     Dosage: 1 TAB, QD
     Route: 048
  4. EUTIROX                            /00068001/ [Concomitant]
     Indication: HYPERTHYROIDISM
     Dosage: 1 TAB, QD
     Route: 048
  5. LACIREX [Concomitant]
     Indication: HYPERTENSION
     Dosage: 1 TAB, QD
     Route: 048
  6. CARDURA [Concomitant]
     Indication: HYPERTENSION
     Dosage: 1 TAB, QD
     Route: 048

REACTIONS (2)
  - HYPOGLYCAEMIA [None]
  - SPEECH DISORDER [None]
